FAERS Safety Report 7602726-5 (Version None)
Quarter: 2011Q3

REPORT INFORMATION
  Report Type: 
  Country: None (occurrence: None)
  Receive Date: 20110711
  Receipt Date: 20110711
  Transmission Date: 20111222
  Serious: Yes (Hospitalization)
  Sender: FDA-Public Use
  Company Number: None

PATIENT
  Sex: Male
  Weight: 69 kg

DRUGS (1)
  1. LISINOPRIL [Suspect]
     Indication: HYPERTENSION
     Dosage: SEVERAL YEARS PER PT

REACTIONS (4)
  - OROPHARYNGEAL PAIN [None]
  - ANGIOEDEMA [None]
  - SPEECH DISORDER [None]
  - LOCAL SWELLING [None]
